FAERS Safety Report 12384839 (Version 1)
Quarter: 2016Q2

REPORT INFORMATION
  Report Type: Spontaneous
  Country: PR (occurrence: PR)
  Receive Date: 20160519
  Receipt Date: 20160519
  Transmission Date: 20160815
  Serious: Yes (Other)
  Sender: FDA-Public Use
  Company Number: PR-JAZZ-2016-PR-008759

PATIENT
  Age: 4 Year
  Sex: Female

DRUGS (1)
  1. ERWINASE [Suspect]
     Active Substance: ASPARAGINASE ERWINIA CHRYSANTHEMI
     Indication: PRODUCT USED FOR UNKNOWN INDICATION
     Dosage: DOSE 4 OF 14
     Route: 030
     Dates: start: 20160418

REACTIONS (3)
  - Rash [Unknown]
  - Post procedural complication [Unknown]
  - Swelling face [Unknown]

NARRATIVE: CASE EVENT DATE: 20160418
